FAERS Safety Report 10589481 (Version 1)
Quarter: 2014Q4

REPORT INFORMATION
  Report Type: Spontaneous
  Country: US (occurrence: None)
  Receive Date: 20141114
  Receipt Date: 20141114
  Transmission Date: 20150529
  Serious: Yes (Other)
  Sender: FDA-Public Use
  Company Number: US-H14001-14-01543

PATIENT
  Age: 36 Year
  Sex: Female

DRUGS (7)
  1. PENICILLIN (BENZYLPENICILLIN) [Concomitant]
  2. CEFDINIR (CEFDINIR) [Suspect]
     Active Substance: CEFDINIR
     Indication: SINUSITIS
  3. SERTRALINE [Concomitant]
     Active Substance: SERTRALINE HYDROCHLORIDE
  4. COUMADIN [Concomitant]
     Active Substance: WARFARIN SODIUM
  5. CEFAZOLIN (CEFAZOLIN) [Suspect]
     Active Substance: CEFAZOLIN
     Indication: PRODUCT USED FOR UNKNOWN INDICATION
  6. HYDROXYCHLOROQUINE (HYDROXYCHLOROQUINE) [Concomitant]
  7. PREDNISONE (PREDNISONE) [Concomitant]
     Active Substance: PREDNISONE

REACTIONS (4)
  - Stevens-Johnson syndrome [None]
  - Toxic epidermal necrolysis [None]
  - Dermatitis bullous [None]
  - Erythema multiforme [None]
